FAERS Safety Report 5143791-7 (Version None)
Quarter: 2006Q4

REPORT INFORMATION
  Report Type: 
  Country: None (occurrence: None)
  Receive Date: 20061106
  Receipt Date: 20061024
  Transmission Date: 20070319
  Serious: Yes (Other)
  Sender: FDA-Public Use
  Company Number: PHEH2006US13337

PATIENT
  Age: 87 Year
  Sex: Male

DRUGS (7)
  1. DIOVAN [Suspect]
     Indication: HYPERTENSION
     Dosage: 160 MG, QD
     Route: 048
     Dates: start: 20060101
  2. ASPIRIN [Concomitant]
     Dosage: 81 MG, QD
  3. CARDIZEM [Concomitant]
     Dosage: 4 MG, QD
  4. LASIX [Concomitant]
     Dosage: 20 MG, QD
  5. POTASSIUM ACETATE [Concomitant]
     Dosage: 10 MEQ, QD
  6. COREG [Concomitant]
     Dosage: 25 MG, BID
  7. ALDACTONE [Concomitant]
     Dosage: 25 MG, QD

REACTIONS (2)
  - MUSCULAR WEAKNESS [None]
  - NEUROPATHY PERIPHERAL [None]
